FAERS Safety Report 7434449-X (Version None)
Quarter: 2011Q2

REPORT INFORMATION
  Report Type: 
  Country: None (occurrence: None)
  Receive Date: 20110425
  Receipt Date: 20110418
  Transmission Date: 20111010
  Serious: Yes (Life-Threatening)
  Sender: FDA-Public Use
  Company Number: US-CELGENEUS-163-21880-11042497

PATIENT
  Sex: Male

DRUGS (5)
  1. HYDROMORPHONE HCL [Concomitant]
     Route: 065
  2. MORPHINE SULFATE [Concomitant]
     Route: 065
  3. DEXAMETHASONE [Concomitant]
     Route: 065
  4. ALBUTEROL [Concomitant]
     Route: 055
  5. REVLIMID [Suspect]
     Indication: MULTIPLE MYELOMA
     Dosage: 5 MILLIGRAM
     Route: 048
     Dates: start: 20110324

REACTIONS (1)
  - DEEP VEIN THROMBOSIS [None]
